FAERS Safety Report 6758587-X (Version None)
Quarter: 2010Q2

REPORT INFORMATION
  Report Type: 
  Country: None (occurrence: None)
  Receive Date: 20100603
  Receipt Date: 20100524
  Transmission Date: 20101027
  Serious: Yes (Death)
  Sender: FDA-Public Use
  Company Number: 20108853

PATIENT
  Age: 12 Year
  Sex: Male

DRUGS (8)
  1. LIORESAL [Suspect]
     Indication: MUSCLE SPASTICITY
     Dosage: MCG, DAILY, INTRATHECAL
     Route: 037
  2. PHENOBARBITAL [Concomitant]
  3. BACLOFEN [Concomitant]
  4. FLOVENT [Concomitant]
  5. MIRALAX [Concomitant]
  6. ERGOCALCIFEROL [Concomitant]
  7. LACTOBACILLUS IRON SULFATE [Concomitant]
  8. ZANTAC [Concomitant]

REACTIONS (12)
  - APNOEA [None]
  - BODY TEMPERATURE DECREASED [None]
  - BRAIN HYPOXIA [None]
  - CARDIO-RESPIRATORY ARREST [None]
  - CEREBRAL ISCHAEMIA [None]
  - EPISTAXIS [None]
  - HEPATIC ISCHAEMIA [None]
  - HYPOTENSION [None]
  - MYOCARDIAL ISCHAEMIA [None]
  - PUPIL FIXED [None]
  - VENTRICULAR FIBRILLATION [None]
  - WITHDRAWAL OF LIFE SUPPORT [None]
